FAERS Safety Report 9550820 (Version 1)
Quarter: 2013Q3

REPORT INFORMATION
  Report Type: Spontaneous
  Country: US (occurrence: US)
  Receive Date: 20130924
  Receipt Date: 20130924
  Transmission Date: 20140515
  Serious: No
  Sender: FDA-Public Use
  Company Number: US-SANOFI-AVENTIS-2013SA053527

PATIENT
  Age: 52 Year
  Sex: Female

DRUGS (3)
  1. AUBAGIO [Suspect]
     Indication: MULTIPLE SCLEROSIS
  2. AUBAGIO [Suspect]
     Indication: MULTIPLE SCLEROSIS
  3. AUBAGIO [Suspect]
     Indication: MULTIPLE SCLEROSIS
     Route: 048
     Dates: start: 20130306

REACTIONS (12)
  - Defaecation urgency [Unknown]
  - Arthritis [Unknown]
  - Gait disturbance [Unknown]
  - Balance disorder [Unknown]
  - Asthenia [Unknown]
  - Contusion [Unknown]
  - Fall [Unknown]
  - Diarrhoea [Unknown]
  - Nausea [Unknown]
  - Hypoaesthesia [Unknown]
  - Paraesthesia [Unknown]
  - Alopecia [Not Recovered/Not Resolved]
